FAERS Safety Report 9419869 (Version 1)
Quarter: 2013Q3

REPORT INFORMATION
  Report Type: Spontaneous
  Country: US (occurrence: None)
  Receive Date: 20130723
  Receipt Date: 20130723
  Transmission Date: 20140520
  Serious: Yes (Other)
  Sender: FDA-Public Use
  Company Number: None

PATIENT
  Age: 65 Year
  Sex: Female
  Weight: 62.6 kg

DRUGS (1)
  1. SULFAMETHOXAZOLE-TMP DS [Suspect]
     Indication: URINARY TRACT INFECTION
     Dosage: 2 TABLET BY MOUTH TWICE A DAY
     Route: 048
     Dates: start: 20130716, end: 20130720

REACTIONS (7)
  - Vitreous floaters [None]
  - Nausea [None]
  - Abdominal pain upper [None]
  - Decreased appetite [None]
  - Insomnia [None]
  - Feeling abnormal [None]
  - Pollakiuria [None]
